FAERS Safety Report 9847277 (Version 1)
Quarter: 2014Q1

REPORT INFORMATION
  Report Type: Spontaneous
  Country: US (occurrence: US)
  Receive Date: 20140127
  Receipt Date: 20140127
  Transmission Date: 20141002
  Serious: Yes (Life-Threatening, Hospitalization)
  Sender: FDA-Public Use
  Company Number: US-DYAX CORP.-2013DX000194

PATIENT
  Age: 45 Year
  Sex: Male

DRUGS (6)
  1. KALBITOR [Suspect]
     Indication: HEREDITARY ANGIOEDEMA
     Route: 058
     Dates: start: 201310, end: 201310
  2. PREDNISONE [Concomitant]
     Indication: HEREDITARY ANGIOEDEMA
     Route: 065
  3. DANAZOL [Concomitant]
     Indication: HEREDITARY ANGIOEDEMA
     Route: 065
  4. EPIPEN [Concomitant]
     Indication: HEREDITARY ANGIOEDEMA
     Route: 065
  5. HYDROXYZINE [Concomitant]
     Indication: PRODUCT USED FOR UNKNOWN INDICATION
     Route: 065
  6. OMEPRAZOLE [Concomitant]
     Indication: PRODUCT USED FOR UNKNOWN INDICATION
     Route: 065

REACTIONS (1)
  - Drug ineffective [Unknown]
